FAERS Safety Report 16183482 (Version 3)
Quarter: 2019Q2

REPORT INFORMATION
  Report Type: Spontaneous
  Country: US (occurrence: US)
  Receive Date: 20190411
  Receipt Date: 20190506
  Transmission Date: 20190711
  Serious: No
  Sender: FDA-Public Use
  Company Number: US-MILLICENT HOLDINGS LTD.-MILL20192216

PATIENT
  Sex: Female

DRUGS (1)
  1. FEMRING [Suspect]
     Active Substance: ESTRADIOL ACETATE
     Indication: HORMONE REPLACEMENT THERAPY
     Dosage: 0.05MG/DAY
     Route: 067
     Dates: start: 20190405, end: 201904

REACTIONS (3)
  - Product use in unapproved indication [None]
  - Abdominal pain [Not Recovered/Not Resolved]
  - Complication associated with device [Unknown]
